FAERS Safety Report 10897591 (Version 1)
Quarter: 2015Q1

REPORT INFORMATION
  Report Type: Spontaneous
  Country: BR (occurrence: BR)
  Receive Date: 20150309
  Receipt Date: 20150309
  Transmission Date: 20150721
  Serious: Yes (Other)
  Sender: FDA-Public Use
  Company Number: BR-PFIZER INC-2015080479

PATIENT
  Age: 50 Year
  Sex: Female
  Weight: 80 kg

DRUGS (6)
  1. DOSTINEX [Suspect]
     Active Substance: CABERGOLINE
     Indication: BLOOD PROLACTIN INCREASED
     Dosage: 0.25 MG, WEEKLY
     Route: 048
     Dates: start: 201409
  2. DOSTINEX [Suspect]
     Active Substance: CABERGOLINE
     Indication: PITUITARY CYST
     Dosage: 1 MG, WEEKLY
     Route: 048
     Dates: start: 201209, end: 201211
  3. POTASSIUM CITRATE/ VITAMIN D [Concomitant]
     Dosage: UNK
     Dates: start: 2013
  4. FLOTAC [Concomitant]
     Active Substance: DICLOFENAC SODIUM
     Dosage: UNK
     Dates: start: 201502
  5. GESTINOL [Concomitant]
     Indication: ENDOMETRIOSIS
     Dosage: UNK
     Dates: start: 2012
  6. AAS [Concomitant]
     Active Substance: ASPIRIN
     Indication: BLOOD DISORDER
     Dosage: UNK

REACTIONS (6)
  - Varicose vein [Not Recovered/Not Resolved]
  - Thrombophlebitis [Not Recovered/Not Resolved]
  - Blood prolactin increased [Unknown]
  - Endometriosis [Not Recovered/Not Resolved]
  - Limb discomfort [Not Recovered/Not Resolved]
  - Pituitary cyst [Unknown]

NARRATIVE: CASE EVENT DATE: 2014
